FAERS Safety Report 9318000 (Version 1)
Quarter: 2013Q2

REPORT INFORMATION
  Report Type: Spontaneous
  Country: US (occurrence: US)
  Receive Date: 20130530
  Receipt Date: 20130530
  Transmission Date: 20140414
  Serious: Yes (Hospitalization)
  Sender: FDA-Public Use
  Company Number: US-B.I. PHARMACEUTICALS,INC./RIDGEFIELD-2013-BI-14770BP

PATIENT
  Age: 53 Year
  Sex: Male

DRUGS (10)
  1. PRADAXA [Suspect]
     Indication: CARDIOVASCULAR EVENT PROPHYLAXIS
     Dosage: 300 MG
     Route: 048
  2. PRADAXA [Suspect]
     Indication: ATRIAL FIBRILLATION
  3. LASIX [Concomitant]
     Indication: HYPERTENSION
     Dosage: 80 MG
     Route: 048
  4. VYTORIN [Concomitant]
     Indication: HYPERLIPIDAEMIA
     Dosage: 1 ANZ
     Route: 048
  5. BYSTOLIC [Concomitant]
     Indication: HYPERTENSION
     Dosage: 5 MG
     Route: 048
  6. NORVASC [Concomitant]
     Indication: HYPERTENSION
     Dosage: 5 MG
     Route: 048
  7. SPIRONOLACTONE [Concomitant]
     Indication: HYPERTENSION
     Dosage: 25 MG
     Route: 048
  8. COREG [Concomitant]
     Indication: HYPERTENSION
     Dosage: 6.25 MG
     Route: 048
  9. HYDROCHLOROTHIAZIDE [Concomitant]
     Indication: HYPERTENSION
     Dosage: 25 MG
     Route: 048
  10. K-DUR [Concomitant]
     Dosage: 20 MEQ
     Route: 048

REACTIONS (2)
  - Cerebrovascular accident [Recovered/Resolved with Sequelae]
  - Hypoaesthesia [Unknown]
